FAERS Safety Report 18377304 (Version 1)
Quarter: 2020Q4

REPORT INFORMATION
  Report Type: Spontaneous
  Country: JP (occurrence: JP)
  Receive Date: 20201013
  Receipt Date: 20201013
  Transmission Date: 20210114
  Serious: Yes (Hospitalization, Other)
  Sender: FDA-Public Use
  Company Number: JP-GLAXOSMITHKLINE-JP2020JPN201623

PATIENT
  Age: 45 Year
  Sex: Female
  Weight: 53.9 kg

DRUGS (3)
  1. PROCATEROL [Concomitant]
     Active Substance: PROCATEROL HYDROCHLORIDE
     Indication: ASTHMA
     Route: 055
  2. SERETIDE [Suspect]
     Active Substance: FLUTICASONE PROPIONATE\SALMETEROL XINAFOATE
     Indication: ASTHMA
     Dosage: UNK
     Route: 055
  3. THEOPHYLLINE [Suspect]
     Active Substance: THEOPHYLLINE ANHYDROUS
     Indication: ASTHMA
     Dosage: 400 MG, QD
     Route: 048

REACTIONS (7)
  - Endometriosis [Unknown]
  - Cholecystitis [Unknown]
  - Abdominal pain upper [Unknown]
  - Pyrexia [Unknown]
  - Endometrial disorder [Unknown]
  - Abdominal pain [Unknown]
  - Nausea [Unknown]
